FAERS Safety Report 8345957-1 (Version None)
Quarter: 2012Q2

REPORT INFORMATION
  Report Type: 
  Country: None (occurrence: None)
  Receive Date: 20120509
  Receipt Date: 20120426
  Transmission Date: 20120825
  Serious: Yes (Other)
  Sender: FDA-Public Use
  Company Number: TR-VERTEX PHARMACEUTICALS INC.-000000000000000343

PATIENT
  Sex: Female
  Weight: 74 kg

DRUGS (5)
  1. PEGINTERFERON ALFA-2A [Concomitant]
     Indication: HEPATITIS C
     Route: 065
  2. COUMADIN [Concomitant]
     Indication: ATRIAL FIBRILLATION
     Route: 048
  3. INCIVEK [Suspect]
     Indication: HEPATITIS C
     Dosage: DOSAGE FORM: TABLET
     Route: 048
     Dates: start: 20120209, end: 20120418
  4. SPIRIVA [Concomitant]
     Indication: ASTHMA
  5. RIBAVIRIN [Concomitant]
     Indication: HEPATITIS C
     Route: 065

REACTIONS (1)
  - LIPASE INCREASED [None]
